FAERS Safety Report 6796358-9 (Version None)
Quarter: 2010Q2

REPORT INFORMATION
  Report Type: 
  Country: None (occurrence: None)
  Receive Date: 20100622
  Receipt Date: 20100607
  Transmission Date: 20101027
  Serious: Yes (Other)
  Sender: FDA-Public Use
  Company Number: MC201000178

PATIENT
  Age: 34 Year
  Sex: Female

DRUGS (1)
  1. ANGIOMAX [Suspect]
     Indication: ANTICOAGULANT THERAPY

REACTIONS (4)
  - COAGULATION TIME ABNORMAL [None]
  - COAGULOPATHY [None]
  - HAEMORRHAGE [None]
  - THROMBOSIS [None]
